FAERS Safety Report 12431619 (Version 1)
Quarter: 2016Q2

REPORT INFORMATION
  Report Type: Spontaneous
  Country: US (occurrence: None)
  Receive Date: 20160602
  Receipt Date: 20160602
  Transmission Date: 20160815
  Serious: No
  Sender: FDA-Public Use
  Company Number: None

PATIENT
  Age: 44 Year
  Sex: Female
  Weight: 95.26 kg

DRUGS (15)
  1. BELBUCA [Suspect]
     Active Substance: BUPRENORPHINE HYDROCHLORIDE
     Indication: ARTHROPATHY
     Dosage: 60 FILMS TWICE A DAY BUCCAL
     Route: 002
     Dates: start: 20160531
  2. PERCOCET [Concomitant]
     Active Substance: ACETAMINOPHEN\OXYCODONE HYDROCHLORIDE
  3. ZOLOFT [Concomitant]
     Active Substance: SERTRALINE HYDROCHLORIDE
  4. VALTREX [Concomitant]
     Active Substance: VALACYCLOVIR HYDROCHLORIDE
  5. FOLIC ACID. [Concomitant]
     Active Substance: FOLIC ACID
  6. BELBUCA [Suspect]
     Active Substance: BUPRENORPHINE HYDROCHLORIDE
     Indication: NEURALGIA
     Dosage: 60 FILMS TWICE A DAY BUCCAL
     Route: 002
     Dates: start: 20160531
  7. EXCEDRIN [Concomitant]
     Active Substance: ACETAMINOPHEN\ASPIRIN\CAFFEINE
  8. VITAMIN B12 [Concomitant]
     Active Substance: CYANOCOBALAMIN
  9. LYRICA [Concomitant]
     Active Substance: PREGABALIN
  10. TRILEPTAL [Concomitant]
     Active Substance: OXCARBAZEPINE
  11. ZYRTEX [Concomitant]
  12. BIOTIN [Concomitant]
     Active Substance: BIOTIN
  13. MULTIVITAMIN [Concomitant]
     Active Substance: VITAMINS
  14. LAMICTAL [Concomitant]
     Active Substance: LAMOTRIGINE
  15. IBUPROFEN. [Concomitant]
     Active Substance: IBUPROFEN

REACTIONS (2)
  - Device issue [None]
  - Product adhesion issue [None]

NARRATIVE: CASE EVENT DATE: 20160601
